FAERS Safety Report 15060744 (Version 1)
Quarter: 2018Q2

REPORT INFORMATION
  Report Type: Spontaneous
  Country: US (occurrence: US)
  Receive Date: 20180622
  Receipt Date: 20180622
  Transmission Date: 20180711
  Serious: Yes (Other)
  Sender: FDA-Public Use
  Company Number: None

PATIENT

DRUGS (1)
  1. KETAMINE 50MG/5ML INJECTION SYRINGE [Suspect]
     Active Substance: KETAMINE
     Route: 042

REACTIONS (4)
  - Somnolence [None]
  - Product label confusion [None]
  - Wrong technique in product usage process [None]
  - Incorrect dose administered [None]

NARRATIVE: CASE EVENT DATE: 20180621
